FAERS Safety Report 7597893-6 (Version None)
Quarter: 2011Q3

REPORT INFORMATION
  Report Type: 
  Country: None (occurrence: None)
  Receive Date: 20110708
  Receipt Date: 20110629
  Transmission Date: 20111222
  Serious: Yes (Other)
  Sender: FDA-Public Use
  Company Number: JP-B.I. PHARMACEUTICALS,INC./RIDGEFIELD-2011-BP-15916NB

PATIENT
  Sex: Male
  Weight: 70 kg

DRUGS (3)
  1. PRADAXA [Suspect]
     Indication: ANTICOAGULANT THERAPY
  2. WARFARIN SODIUM [Concomitant]
     Dosage: 2.75 MG
     Route: 048
     Dates: start: 20061110, end: 20110523
  3. PRADAXA [Suspect]
     Indication: ATRIAL FIBRILLATION
     Dosage: 220 MG
     Route: 048
     Dates: start: 20110526, end: 20110607

REACTIONS (2)
  - MUSCULOSKELETAL DISCOMFORT [None]
  - OESOPHAGEAL DISORDER [None]
